FAERS Safety Report 8971291 (Version 3)
Quarter: 2013Q1

REPORT INFORMATION
  Report Type: Other
  Country: RO (occurrence: RO)
  Receive Date: 20121218
  Receipt Date: 20130124
  Transmission Date: 20140127
  Serious: Yes (Hospitalization, Other)
  Sender: FDA-Public Use
  Company Number: RO-BRISTOL-MYERS SQUIBB COMPANY-17223421

PATIENT
  Age: 21 Year
  Sex: Male

DRUGS (4)
  1. EFAVIRENZ CAPS [Suspect]
     Indication: HIV INFECTION
     Dosage: 400MG,PO FOR 4 WEEKS,200MG/D,PO
     Route: 042
     Dates: start: 20100531, end: 20100710
  2. COMBIVIR [Suspect]
     Indication: HIV INFECTION
     Route: 048
     Dates: start: 20100531, end: 20100710
  3. MYCOMAX [Concomitant]
     Indication: ANTIFUNGAL TREATMENT
     Dosage: STARTED AS 400MG BID IV, THEN RECEIVED 400MG DAILY PO
     Route: 042
     Dates: start: 20100506
  4. BISEPTOL [Concomitant]
     Dates: start: 20120413

REACTIONS (2)
  - Rash [Recovered/Resolved]
  - Anaemia [Recovered/Resolved]
